FAERS Safety Report 9835699 (Version 2)
Quarter: 2014Q2

REPORT INFORMATION
  Report Type: Spontaneous
  Country: JP (occurrence: JP)
  Receive Date: 20140122
  Receipt Date: 20140428
  Transmission Date: 20141212
  Serious: Yes (Hospitalization)
  Sender: FDA-Public Use
  Company Number: PHHY2014JP005787

PATIENT
  Age: 9 Year
  Sex: Male

DRUGS (9)
  1. NEORAL [Suspect]
     Indication: PROPHYLAXIS AGAINST GRAFT VERSUS HOST DISEASE
     Dosage: 140 MG, DAILY
     Route: 048
     Dates: start: 20130507, end: 20130518
  2. METHOTREXATE [Suspect]
     Indication: GRAFT VERSUS HOST DISEASE
  3. FLUDARABINE [Suspect]
     Dosage: 120 MG/M^2
  4. MELPHALAN [Suspect]
     Dosage: 140 MG/M^2
  5. ZOVIRAX [Concomitant]
     Dosage: 400 MG, UNK
     Route: 048
     Dates: start: 20130423
  6. ZOVIRAX [Concomitant]
     Route: 065
     Dates: start: 20130519
  7. BAKTAR [Concomitant]
     Dosage: UNK
     Route: 048
     Dates: start: 20130423
  8. BAKTAR [Concomitant]
     Dosage: UNK
     Dates: start: 20130530
  9. DIFLUCAN [Concomitant]
     Dosage: UNK
     Dates: start: 20130604

REACTIONS (1)
  - Pancreatitis acute [Recovering/Resolving]
